FAERS Safety Report 8172934-6 (Version None)
Quarter: 2012Q1

REPORT INFORMATION
  Report Type: 
  Country: None (occurrence: None)
  Receive Date: 20120223
  Receipt Date: 20120210
  Transmission Date: 20120608
  Serious: Yes (Death, Life-Threatening, Hospitalization, Other)
  Sender: FDA-Public Use
  Company Number: 2009AL002538

PATIENT
  Age: 11 Year
  Sex: Male
  Weight: 34 kg

DRUGS (8)
  1. HYDROCHLOROTHIAZIDE [Concomitant]
  2. LEVOCARNITINE [Concomitant]
  3. LASIX [Concomitant]
  4. BABY ASPIRINE [Concomitant]
  5. ENALAPRIL MALEATE [Concomitant]
  6. CARVEDILOL [Concomitant]
  7. DIGOXIN [Suspect]
     Indication: PRODUCT USED FOR UNKNOWN INDICATION
     Dosage: 125 MCG;QD;PO
     Route: 048
     Dates: start: 20080325, end: 20080714
  8. POTASSIUM CHLORIDE [Concomitant]

REACTIONS (22)
  - UNEVALUABLE EVENT [None]
  - VOMITING [None]
  - PULMONARY VALVE INCOMPETENCE [None]
  - UNRESPONSIVE TO STIMULI [None]
  - CARDIAC MURMUR [None]
  - NAUSEA [None]
  - MUSCULOSKELETAL STIFFNESS [None]
  - CONVULSION [None]
  - TRICUSPID VALVE INCOMPETENCE [None]
  - EYE MOVEMENT DISORDER [None]
  - CARDIAC ARREST [None]
  - CONGESTIVE CARDIOMYOPATHY [None]
  - HEART RATE INCREASED [None]
  - BLOOD UREA INCREASED [None]
  - BLOOD CREATININE INCREASED [None]
  - ECONOMIC PROBLEM [None]
  - ASTHENIA [None]
  - MULTIPLE INJURIES [None]
  - MITRAL VALVE INCOMPETENCE [None]
  - BLOOD POTASSIUM DECREASED [None]
  - RIGHT VENTRICULAR HYPERTROPHY [None]
  - ELECTROCARDIOGRAM ST-T CHANGE [None]
